FAERS Safety Report 4999504-2 (Version None)
Quarter: 2006Q2

REPORT INFORMATION
  Report Type: 
  Country: None (occurrence: None)
  Receive Date: 20060510
  Receipt Date: 20060510
  Transmission Date: 20061013
  Serious: Yes (Life-Threatening)
  Sender: FDA-Public Use
  Company Number: None

PATIENT
  Age: 21 Year
  Sex: Female
  Weight: 59 kg

DRUGS (7)
  1. PHENYTOIN [Suspect]
     Indication: CONVULSION
     Dosage: 1 GM IV OTO
     Route: 042
     Dates: start: 20060328
  2. PHENYTOIN [Suspect]
     Indication: PROPHYLAXIS
     Dosage: 1 GM IV OTO
     Route: 042
     Dates: start: 20060328
  3. ESCITALOPRAM OXALATE [Concomitant]
  4. TRAZODONE HCL [Concomitant]
  5. FIORINOL [Concomitant]
  6. CETIRIZINE [Concomitant]
  7. FENTANYL [Concomitant]

REACTIONS (5)
  - BLOOD PRESSURE DECREASED [None]
  - BLOOD UREA DECREASED [None]
  - HEART RATE DECREASED [None]
  - HYPERHIDROSIS [None]
  - PALLOR [None]
